FAERS Safety Report 24188908 (Version 1)
Quarter: 2024Q3

REPORT INFORMATION
  Report Type: Spontaneous
  Country: US (occurrence: US)
  Receive Date: 20240808
  Receipt Date: 20240808
  Transmission Date: 20241017
  Serious: No
  Sender: OTSUKA
  Company Number: US-OTSUKA-2024_006002

PATIENT
  Age: 9 Year
  Sex: Female

DRUGS (40)
  1. ARIPIPRAZOLE [Suspect]
     Active Substance: ARIPIPRAZOLE
     Indication: Psychiatric decompensation
     Dosage: UNK
     Route: 065
  2. ARIPIPRAZOLE [Suspect]
     Active Substance: ARIPIPRAZOLE
     Indication: Aggression
  3. RISPERIDONE [Concomitant]
     Active Substance: RISPERIDONE
     Indication: Psychiatric decompensation
     Dosage: UNK
     Route: 065
  4. RISPERIDONE [Concomitant]
     Active Substance: RISPERIDONE
     Indication: Aggression
  5. LURASIDONE [Concomitant]
     Active Substance: LURASIDONE
     Indication: Psychiatric decompensation
     Dosage: UNK
     Route: 065
  6. LURASIDONE [Concomitant]
     Active Substance: LURASIDONE
     Indication: Aggression
  7. QUETIAPINE [Concomitant]
     Active Substance: QUETIAPINE
     Indication: Psychiatric decompensation
     Dosage: UNK
     Route: 065
  8. QUETIAPINE [Concomitant]
     Active Substance: QUETIAPINE
     Indication: Aggression
  9. SERTRALINE [Concomitant]
     Active Substance: SERTRALINE HYDROCHLORIDE
     Indication: Psychiatric decompensation
     Dosage: UNK
     Route: 042
  10. SERTRALINE [Concomitant]
     Active Substance: SERTRALINE HYDROCHLORIDE
     Indication: Aggression
  11. FLUOXETINE [Concomitant]
     Active Substance: FLUOXETINE HYDROCHLORIDE
     Indication: Psychiatric decompensation
     Dosage: UNK
     Route: 065
  12. FLUOXETINE [Concomitant]
     Active Substance: FLUOXETINE HYDROCHLORIDE
     Indication: Aggression
  13. FLUVOXAMINE [Concomitant]
     Active Substance: FLUVOXAMINE
     Indication: Psychiatric decompensation
     Dosage: UNK
     Route: 065
  14. FLUVOXAMINE [Concomitant]
     Active Substance: FLUVOXAMINE
     Indication: Aggression
  15. CLOMIPRAMINE [Concomitant]
     Active Substance: CLOMIPRAMINE
     Indication: Psychiatric decompensation
     Dosage: UNK
     Route: 065
  16. CLOMIPRAMINE [Concomitant]
     Active Substance: CLOMIPRAMINE
     Indication: Aggression
  17. LITHIUM [Concomitant]
     Active Substance: LITHIUM
     Indication: Psychiatric decompensation
     Dosage: UNK
     Route: 065
  18. LITHIUM [Concomitant]
     Active Substance: LITHIUM
     Indication: Aggression
  19. OXCARBAZEPINE [Concomitant]
     Active Substance: OXCARBAZEPINE
     Indication: Psychiatric decompensation
     Dosage: UNK
     Route: 065
  20. OXCARBAZEPINE [Concomitant]
     Active Substance: OXCARBAZEPINE
     Indication: Aggression
  21. GABAPENTIN [Concomitant]
     Active Substance: GABAPENTIN
     Indication: Aggression
     Dosage: UNK
     Route: 065
  22. GABAPENTIN [Concomitant]
     Active Substance: GABAPENTIN
     Indication: Psychiatric decompensation
  23. DIVALPROEX SODIUM [Concomitant]
     Active Substance: DIVALPROEX SODIUM
     Indication: Psychiatric decompensation
     Dosage: UNK
     Route: 065
  24. DIVALPROEX SODIUM [Concomitant]
     Active Substance: DIVALPROEX SODIUM
     Indication: Aggression
  25. LORAZEPAM [Concomitant]
     Active Substance: LORAZEPAM
     Indication: Psychiatric decompensation
     Dosage: UNK
     Route: 042
  26. LORAZEPAM [Concomitant]
     Active Substance: LORAZEPAM
     Indication: Aggression
  27. CLONIDINE [Concomitant]
     Active Substance: CLONIDINE
     Indication: Psychiatric decompensation
     Dosage: UNK
     Route: 065
  28. CLONIDINE [Concomitant]
     Active Substance: CLONIDINE
     Indication: Aggression
  29. PROPRANOLOL [Concomitant]
     Active Substance: PROPRANOLOL HYDROCHLORIDE
     Indication: Aggression
     Dosage: UNK
     Route: 065
  30. PROPRANOLOL [Concomitant]
     Active Substance: PROPRANOLOL HYDROCHLORIDE
     Indication: Psychiatric decompensation
  31. OLANZAPINE [Concomitant]
     Active Substance: OLANZAPINE
     Indication: Psychiatric decompensation
     Dosage: UNK
     Route: 065
  32. OLANZAPINE [Concomitant]
     Active Substance: OLANZAPINE
     Indication: Aggression
  33. DIPHENHYDRAMINE [Concomitant]
     Active Substance: DIPHENHYDRAMINE
     Indication: Psychiatric decompensation
     Dosage: UNK
     Route: 065
  34. DIPHENHYDRAMINE [Concomitant]
     Active Substance: DIPHENHYDRAMINE
     Indication: Aggression
  35. HALOPERIDOL [Concomitant]
     Active Substance: HALOPERIDOL
     Indication: Psychiatric decompensation
     Dosage: UNK
     Route: 065
  36. HALOPERIDOL [Concomitant]
     Active Substance: HALOPERIDOL
     Indication: Aggression
  37. CHLORPROMAZINE [Concomitant]
     Active Substance: CHLORPROMAZINE
     Indication: Psychiatric decompensation
     Dosage: UNK
     Route: 065
  38. CHLORPROMAZINE [Concomitant]
     Active Substance: CHLORPROMAZINE
     Indication: Aggression
  39. LORAZEPAM [Concomitant]
     Active Substance: LORAZEPAM
     Indication: Psychiatric decompensation
     Dosage: UNK
     Route: 048
  40. LORAZEPAM [Concomitant]
     Active Substance: LORAZEPAM
     Indication: Aggression

REACTIONS (1)
  - Product use in unapproved indication [Unknown]
